FAERS Safety Report 8315352 (Version 2)
Quarter: 2012Q4

REPORT INFORMATION
  Report Type: Spontaneous
  Country: DK (occurrence: None)
  Receive Date: 20111219
  Receipt Date: 20121002
  Transmission Date: 20130627
  Serious: Yes (Death, Hospitalization, Other)
  Sender: FDA-Public Use
  Company Number: 2011MA017668

PATIENT
  Age: 64 Year
  Sex: Male

DRUGS (7)
  1. FLUDARABINE PHOSPHATE [Suspect]
     Indication: CHRONIC LYMPHOCYTIC LEUKAEMIA
  2. RITUXAN [Suspect]
     Indication: HAEMOLYSIS
     Dosage: QOW, IV
     Route: 042
     Dates: start: 20070220, end: 20110719
  3. RITUXAN [Suspect]
     Indication: CHRONIC LYMPHOCYTIC LEUKAEMIA REFRACTORY
     Dosage: QOW, IV
     Route: 042
     Dates: start: 20070220, end: 20110719
  4. CYCLOPHOSPHAMIDE [Suspect]
     Indication: CHRONIC LYMPHOCYTIC LEUKAEMIA
     Dosage: 100 MG, PO
     Route: 048
     Dates: start: 20070220, end: 20070529
  5. CYCLOPHOSPHAMIDE [Suspect]
     Indication: HAEMOLYSIS
     Dosage: 100 MG, PO
     Route: 048
     Dates: start: 20070220, end: 20070529
  6. CHLORAMBUCIL [Concomitant]
  7. PREDNISOLONE [Concomitant]

REACTIONS (5)
  - PROGRESSIVE MULTIFOCAL LEUKOENCEPHALOPATHY [None]
  - TREMOR [None]
  - PARAESTHESIA [None]
  - Coordination abnormal [None]
  - MUSCULAR WEAKNESS [None]
